APPROVED DRUG PRODUCT: LACOSAMIDE
Active Ingredient: LACOSAMIDE
Strength: 10MG/ML
Dosage Form/Route: SOLUTION;ORAL
Application: A209301 | Product #001 | TE Code: AA
Applicant: HETERO LABS LTD UNIT III
Approved: May 31, 2022 | RLD: No | RS: No | Type: RX